FAERS Safety Report 8877737 (Version 1)
Quarter: 2012Q4

REPORT INFORMATION
  Report Type: 
  Country: GB (occurrence: GB)
  Receive Date: 20121024
  Receipt Date: 20121024
  Transmission Date: 20130627
  Serious: Yes (Other)
  Sender: FDA-Public Use
  Company Number: GB-TARO-2012P1061222

PATIENT
  Age: 62 Year
  Sex: Male
  Weight: 118.63 kg

DRUGS (2)
  1. WARFARIN [Suspect]
  2. OMEGA-3 FISH OIL [Suspect]

REACTIONS (2)
  - Drug interaction [Unknown]
  - International normalised ratio increased [Unknown]
